FAERS Safety Report 11185485 (Version 1)
Quarter: 2015Q2

REPORT INFORMATION
  Report Type: Spontaneous
  Country: US (occurrence: US)
  Receive Date: 20150612
  Receipt Date: 20150612
  Transmission Date: 20150821
  Serious: Yes (Hospitalization)
  Sender: FDA-Public Use
  Company Number: US-SHIRE-ALL1-2014-00432

PATIENT
  Age: 12 Year
  Sex: Male
  Weight: 69.84 kg

DRUGS (12)
  1. DEPAKOTE [Suspect]
     Active Substance: DIVALPROEX SODIUM
     Dosage: 250 MG, 2X/DAY:BID
     Route: 048
     Dates: start: 201309
  2. PROZAC [Suspect]
     Active Substance: FLUOXETINE HYDROCHLORIDE
     Indication: AFFECTIVE DISORDER
     Dosage: 10 MG, 1X/DAY:QD
     Route: 048
     Dates: start: 20121108
  3. VYVANSE [Suspect]
     Active Substance: LISDEXAMFETAMINE DIMESYLATE
     Indication: ATTENTION DEFICIT/HYPERACTIVITY DISORDER
     Dosage: 40 MG, 1X/DAY:QD (MORNING)
     Route: 048
     Dates: start: 20130321, end: 2013
  4. DESYREL [Suspect]
     Active Substance: TRAZODONE HYDROCHLORIDE
     Indication: AFFECTIVE DISORDER
     Dosage: 12.5 MG, 1X/DAY:QD (NIGHTLY)
     Route: 048
     Dates: start: 20130617
  5. VYVANSE [Suspect]
     Active Substance: LISDEXAMFETAMINE DIMESYLATE
     Dosage: 20 MG, 1X/DAY:QD (NOON)
     Route: 048
     Dates: start: 2013, end: 20130924
  6. MENINGOCOCCAL POLYSACCHARIDE VACCINE A NOS [Suspect]
     Active Substance: MENINGOCOCCAL POLYSACCHARIDE VACCINE A\NEISSERIA MENINGITIDIS GROUP A CAPSULAR POLYSACCHARIDE ANTIGEN
     Indication: CLINICAL TRIAL PARTICIPANT
     Dosage: UNK UNK, ONE DOSE
     Route: 030
     Dates: start: 20130409, end: 20130409
  7. CATAPRES                           /00171101/ [Suspect]
     Active Substance: CLONIDINE
     Indication: AFFECTIVE DISORDER
     Dosage: 0.2 MG, 1X/DAY:QD (NIGHTLY)
     Route: 048
     Dates: start: 20120301
  8. DEPAKOTE [Suspect]
     Active Substance: DIVALPROEX SODIUM
     Indication: AFFECTIVE DISORDER
     Dosage: 250 MG, 3X/DAY:TID
     Route: 048
     Dates: start: 20130621, end: 201309
  9. VYVANSE [Suspect]
     Active Substance: LISDEXAMFETAMINE DIMESYLATE
     Dosage: 40 MG, 1X/DAY:QD (EVENING)
     Dates: start: 2013, end: 20130924
  10. THORAZINE [Suspect]
     Active Substance: CHLORPROMAZINE
     Dosage: 25 MG, AS REQ^D (EVERY 8 HOURS)
     Route: 048
     Dates: start: 201309
  11. CATAPRES                           /00171101/ [Suspect]
     Active Substance: CLONIDINE
     Dosage: 0.1 MG (HALF TABLET), 2X/DAY:BID
     Route: 048
     Dates: start: 201309
  12. THORAZINE [Suspect]
     Active Substance: CHLORPROMAZINE
     Indication: AFFECTIVE DISORDER
     Dosage: 20 MG, 3X/DAY:TID
     Route: 048
     Dates: start: 20130326

REACTIONS (5)
  - Aggression [Recovered/Resolved]
  - Affective disorder [Recovered/Resolved]
  - Agitation [Recovered/Resolved]
  - Condition aggravated [Recovered/Resolved]
  - Drug prescribing error [Recovered/Resolved]

NARRATIVE: CASE EVENT DATE: 201309
